FAERS Safety Report 15907922 (Version 1)
Quarter: 2019Q1

REPORT INFORMATION
  Report Type: Spontaneous
  Country: US (occurrence: US)
  Receive Date: 20190204
  Receipt Date: 20190204
  Transmission Date: 20190417
  Serious: Yes (Hospitalization)
  Sender: FDA-Public Use
  Company Number: US-AMREGENT-20190125

PATIENT
  Age: 30 Year
  Sex: Female

DRUGS (7)
  1. DEXAMETHASONE SODIUM PHOSPHATE INJECTION, USP (4901-25) [Suspect]
     Active Substance: DEXAMETHASONE SODIUM PHOSPHATE
     Dosage: HLH-94 PROTOCOL(1ST ADMISSION)
     Route: 065
  2. GRANULOCYTE-MACROPHAGE COLONY-STIMULATING FACTOR (GM-CSF) [Concomitant]
     Dosage: UNKNOWN
     Route: 065
  3. ETOPOSIDE. [Concomitant]
     Active Substance: ETOPOSIDE
     Dosage: HLH-94 PROTOCOL WEEKLY
     Route: 065
  4. RITUXIMAB. [Concomitant]
     Active Substance: RITUXIMAB
     Dosage: 375 MG/M2
     Route: 065
  5. GRANULOCYTE COLONY STIMULATING FACTOR (G-CSF) [Concomitant]
     Dosage: UNKNOWN
     Route: 065
  6. ANTIBIOTIC TREATMENT (UNSPECIFIED) [Concomitant]
     Dosage: UNKNOWN
     Route: 065
  7. MULTIPLE VASOPRESSORS [Concomitant]
     Dosage: UNKNOWN
     Route: 065

REACTIONS (3)
  - Product use in unapproved indication [Unknown]
  - Gastritis [Unknown]
  - Gastrointestinal haemorrhage [Unknown]
